FAERS Safety Report 10195787 (Version 2)
Quarter: 2014Q2

REPORT INFORMATION
  Report Type: Spontaneous
  Country: US (occurrence: None)
  Receive Date: 20140522
  Receipt Date: 20140603
  Transmission Date: 20141212
  Serious: Yes (Other)
  Sender: FDA-Public Use
  Company Number: 2014P1004163

PATIENT
  Age: 58 Year
  Sex: Female
  Weight: 90.72 kg

DRUGS (10)
  1. PREDNISONE [Suspect]
     Indication: HEREDITARY ANGIOEDEMA
     Route: 048
     Dates: start: 20140509, end: 20140509
  2. PROAIR [Concomitant]
  3. DIAZEPAM [Concomitant]
  4. IBUPROFEN [Concomitant]
  5. NYSTATIN CREAM [Concomitant]
  6. VERAPAMIL ER [Concomitant]
  7. VITAMIN B-12 (CYANOCOBALAMIN) INJECTIONS [Concomitant]
  8. OMEPRAZOLE [Concomitant]
  9. HYDROCODONE ACETAMINOPHEN [Concomitant]
  10. CRESTOR [Concomitant]

REACTIONS (4)
  - Blood pressure increased [None]
  - Angioedema [None]
  - Heart rate increased [None]
  - Chest discomfort [None]
